FAERS Safety Report 4385594-7 (Version None)
Quarter: 2004Q2

REPORT INFORMATION
  Report Type: 
  Country: None (occurrence: None)
  Receive Date: 20040622
  Receipt Date: 20040608
  Transmission Date: 20050107
  Serious: Yes (Life-Threatening, Hospitalization)
  Sender: FDA-Public Use
  Company Number: 04P-087-0263350-00

PATIENT
  Age: 6 Month
  Sex: Female

DRUGS (7)
  1. VALPROATE SODIUM [Suspect]
     Indication: EPILEPSY
     Dosage: 199.8 MG
     Dates: start: 20031203, end: 20040309
  2. ZONISAMIDE [Suspect]
     Indication: EPILEPSY
     Dosage: 60 MG, PER ORAL
     Route: 048
     Dates: start: 20031203, end: 20040309
  3. CORTROSYN 2 [Concomitant]
  4. CLARITHROMYCIN [Concomitant]
  5. LACTOBACILLUS ACIDOPHILUS [Concomitant]
  6. CARBOCISTEINE [Concomitant]
  7. BROMHEXINE HYDROCHLORIDE [Concomitant]

REACTIONS (2)
  - INTERSTITIAL LUNG DISEASE [None]
  - RESPIRATORY SYNCYTIAL VIRUS INFECTION [None]
